FAERS Safety Report 5886343-3 (Version None)
Quarter: 2008Q3

REPORT INFORMATION
  Report Type: 
  Country: None (occurrence: None)
  Receive Date: 20080917
  Receipt Date: 20080910
  Transmission Date: 20090109
  Serious: Yes (Hospitalization)
  Sender: FDA-Public Use
  Company Number: B0536562A

PATIENT
  Age: 77 Year
  Sex: Female

DRUGS (1)
  1. ZOVIRAX [Suspect]
     Indication: ENCEPHALITIS HERPES
     Route: 042
     Dates: start: 20080717, end: 20080725

REACTIONS (4)
  - CLONUS [None]
  - CONVULSION [None]
  - OVERDOSE [None]
  - RENAL FAILURE [None]
